FAERS Safety Report 17800566 (Version 1)
Quarter: 2020Q2

REPORT INFORMATION
  Report Type: Spontaneous
  Country: DE (occurrence: DE)
  Receive Date: 20200519
  Receipt Date: 20200519
  Transmission Date: 20200714
  Serious: Yes (Hospitalization)
  Sender: FDA-Public Use
  Company Number: DE-SUN PHARMACEUTICAL INDUSTRIES LTD-2020RR-247598

PATIENT
  Age: 17 Year
  Sex: Female
  Weight: 66 kg

DRUGS (5)
  1. CITALOPRAM [Suspect]
     Active Substance: CITALOPRAM HYDROBROMIDE
     Indication: MOOD ALTERED
     Dosage: DAILY DOSE: 10 MG MILLGRAM(S) EVERY 12 TOTAL ; IN TOTAL
     Route: 048
     Dates: start: 20200405, end: 20200405
  2. COLECALCIFEROL [Concomitant]
     Active Substance: CHOLECALCIFEROL
     Indication: VITAMIN D DEFICIENCY
     Dosage: DAILY DOSE: 1000 IU INTERNATIONAL UNIT(S) EVERY DAYS
     Route: 048
  3. FERRO-SANOL DUODENAL [Concomitant]
     Active Substance: FERROUS GLYCINE SULFATE
     Indication: IRON DEFICIENCY
     Dosage: DAILY DOSE: 100 MG MILLGRAM(S) EVERY DAYS
     Route: 048
  4. ARIPIPRAZOL [Concomitant]
     Active Substance: ARIPIPRAZOLE
     Indication: BORDERLINE PERSONALITY DISORDER
     Dosage: DAILY DOSE: 20 MG MILLGRAM(S) EVERY DAYS 2 SEPARATED DOSES
     Route: 048
  5. PROMETHAZINE [Concomitant]
     Active Substance: PROMETHAZINE HYDROCHLORIDE
     Indication: BORDERLINE PERSONALITY DISORDER
     Dosage: DAILY DOSE: 50 MG MILLGRAM(S) EVERY DAYS 2 SEPARATED DOSES
     Route: 048

REACTIONS (3)
  - Intentional overdose [Recovered/Resolved]
  - Product administration error [Recovered/Resolved]
  - No adverse event [Recovered/Resolved]

NARRATIVE: CASE EVENT DATE: 20200405
